FAERS Safety Report 13621254 (Version 1)
Quarter: 2017Q2

REPORT INFORMATION
  Report Type: Spontaneous
  Country: US (occurrence: US)
  Receive Date: 20170607
  Receipt Date: 20170607
  Transmission Date: 20170830
  Serious: No
  Sender: FDA-Public Use
  Company Number: US-PFIZER INC-2017241694

PATIENT
  Age: 42 Year
  Sex: Female

DRUGS (3)
  1. MOBIC [Concomitant]
     Active Substance: MELOXICAM
     Dosage: UNK, DAILY
  2. XELJANZ [Suspect]
     Active Substance: TOFACITINIB CITRATE
     Dosage: UNK
  3. METHOCARBAMOL. [Interacting]
     Active Substance: METHOCARBAMOL
     Dosage: UNK, DAILY (AT BEDTIME)

REACTIONS (4)
  - Arthralgia [Unknown]
  - Drug interaction [Unknown]
  - Joint stiffness [Unknown]
  - Drug effect incomplete [Unknown]
